FAERS Safety Report 8205129-8 (Version None)
Quarter: 2012Q1

REPORT INFORMATION
  Report Type: 
  Country: None (occurrence: None)
  Receive Date: 20120313
  Receipt Date: 20120305
  Transmission Date: 20120608
  Serious: Yes (Other)
  Sender: FDA-Public Use
  Company Number: US-GLAXOSMITHKLINE-A0968623A

PATIENT
  Age: 59 Year
  Sex: Female

DRUGS (7)
  1. ALBUTEROL [Concomitant]
  2. AMBIEN [Concomitant]
  3. PREVACID [Concomitant]
  4. ENALAPRIL [Concomitant]
  5. LEVAQUIN [Concomitant]
  6. AVELOX [Concomitant]
  7. ADVAIR DISKUS 100/50 [Suspect]
     Indication: PRODUCT USED FOR UNKNOWN INDICATION
     Dosage: 1PUFF TWICE PER DAY
     Route: 055
     Dates: start: 20100801

REACTIONS (3)
  - PRODUCT QUALITY ISSUE [None]
  - CHOKING SENSATION [None]
  - CHOKING [None]
